FAERS Safety Report 9554139 (Version 2)
Quarter: 2013Q4

REPORT INFORMATION
  Report Type: Spontaneous
  Country: RU (occurrence: RU)
  Receive Date: 20130925
  Receipt Date: 20131111
  Transmission Date: 20140711
  Serious: Yes (Other)
  Sender: FDA-Public Use
  Company Number: RU-BRISTOL-MYERS SQUIBB COMPANY-19382571

PATIENT
  Age: 36 Year
  Sex: Male

DRUGS (6)
  1. ABILIFY [Suspect]
     Indication: HYPOMANIA
     Route: 048
     Dates: start: 201305
  2. ABILIFY [Suspect]
     Indication: DELIRIUM
     Route: 048
     Dates: start: 201305
  3. ABILIFY [Suspect]
     Indication: HALLUCINATION
     Route: 048
     Dates: start: 201305
  4. VITAMIN E [Concomitant]
  5. CLOZAPINE [Concomitant]
  6. LITHIUM CARBONATE [Concomitant]

REACTIONS (1)
  - Delusion [Unknown]
